FAERS Safety Report 13459254 (Version 3)
Quarter: 2017Q2

REPORT INFORMATION
  Report Type: Report from Study
  Country: US (occurrence: US)
  Receive Date: 20170419
  Receipt Date: 20170504
  Transmission Date: 20170830
  Serious: Yes (Hospitalization, Other)
  Sender: FDA-Public Use
  Company Number: US-BAYER-2017-040225

PATIENT
  Age: 72 Year
  Sex: Male

DRUGS (1)
  1. NEXAVAR [Suspect]
     Active Substance: SORAFENIB
     Indication: HEPATOCELLULAR CARCINOMA
     Dosage: 200 MG, BID
     Route: 048
     Dates: start: 20170208, end: 20170318

REACTIONS (8)
  - Hypotension [None]
  - Leukopenia [Recovering/Resolving]
  - Photosensitivity reaction [None]
  - Diarrhoea [Recovering/Resolving]
  - Blood glucose decreased [None]
  - Facial pain [None]
  - Device related infection [Recovered/Resolved]
  - Paraesthesia [None]

NARRATIVE: CASE EVENT DATE: 2017
